FAERS Safety Report 7825784-1 (Version None)
Quarter: 2011Q4

REPORT INFORMATION
  Report Type: 
  Country: None (occurrence: None)
  Receive Date: 20111019
  Receipt Date: 20111011
  Transmission Date: 20120403
  Serious: Yes (Hospitalization)
  Sender: FDA-Public Use
  Company Number: US-US-EMD SERONO, INC.-7076018

PATIENT
  Sex: Female

DRUGS (10)
  1. MDX-1338 [Suspect]
     Indication: ACUTE MYELOID LEUKAEMIA
     Dates: start: 20110621
  2. DAPSONE [Concomitant]
     Dates: start: 20110630
  3. NOVANTRONE [Suspect]
     Indication: ACUTE MYELOID LEUKAEMIA
     Dates: start: 20110629, end: 20110703
  4. LEVAQUIN [Concomitant]
     Dates: start: 20110310, end: 20110708
  5. FLUCONAZOLE [Concomitant]
     Dates: start: 20110629, end: 20110925
  6. ACYCLOVIR [Concomitant]
     Dates: start: 20110310
  7. CYTARABINE [Suspect]
     Indication: ACUTE MYELOID LEUKAEMIA
     Dates: start: 20110629, end: 20110703
  8. PREDNISONE [Concomitant]
  9. POSACONAZOLE [Concomitant]
     Dates: end: 20110708
  10. ETOPOSIDE [Suspect]
     Indication: ACUTE MYELOID LEUKAEMIA
     Dates: start: 20110629, end: 20110703

REACTIONS (3)
  - PNEUMONIA FUNGAL [None]
  - MUCOSAL INFLAMMATION [None]
  - FEBRILE NEUTROPENIA [None]
